FAERS Safety Report 15615506 (Version 1)
Quarter: 2018Q4

REPORT INFORMATION
  Report Type: Spontaneous
  Country: US (occurrence: US)
  Receive Date: 20181114
  Receipt Date: 20181114
  Transmission Date: 20190205
  Serious: No
  Sender: FDA-Public Use
  Company Number: US-GLENMARK PHARMACEUTICALS-2018GMK037436

PATIENT

DRUGS (3)
  1. HEATHER [Suspect]
     Active Substance: NORETHINDRONE
     Indication: ORAL CONTRACEPTION
     Dosage: 1 DF, OD
     Route: 048
     Dates: start: 201801
  2. LEVOTHYROXIN [Concomitant]
     Active Substance: LEVOTHYROXINE
     Indication: AUTOIMMUNE THYROIDITIS
     Dosage: 150 MG, OD
     Route: 048
  3. VITAMINS NOS [Concomitant]
     Active Substance: VITAMINS
     Indication: VITAMIN SUPPLEMENTATION
     Dosage: UNK
     Route: 065

REACTIONS (1)
  - Abdominal distension [Unknown]
